FAERS Safety Report 23113210 (Version 1)
Quarter: 2023Q4

REPORT INFORMATION
  Report Type: Spontaneous
  Country: CN (occurrence: CN)
  Receive Date: 20231027
  Receipt Date: 20231027
  Transmission Date: 20240109
  Serious: Yes (Life-Threatening)
  Sender: FDA-Public Use
  Company Number: CN-CHEPLA-2023013414

PATIENT
  Age: 83 Year
  Sex: Male
  Weight: 65 kg

DRUGS (1)
  1. CAPECITABINE [Suspect]
     Active Substance: CAPECITABINE
     Indication: Colon cancer
     Dosage: BID?DAILY DOSE: 3 GRAM
     Route: 048
     Dates: start: 20230909, end: 20230909

REACTIONS (2)
  - Seizure [Recovered/Resolved]
  - Abnormal behaviour [Recovered/Resolved]

NARRATIVE: CASE EVENT DATE: 20230909
